FAERS Safety Report 6162194-X (Version None)
Quarter: 2009Q2

REPORT INFORMATION
  Report Type: 
  Country: None (occurrence: None)
  Receive Date: 20090417
  Receipt Date: 20090403
  Transmission Date: 20091009
  Serious: Yes (Congenital Anomaly)
  Sender: FDA-Public Use
  Company Number: 1000005711

PATIENT
  Sex: Male
  Weight: 3.45 kg

DRUGS (2)
  1. ESCITALOPRAM [Suspect]
     Dosage: 10 MG (10 MG, 1 IN 1 D), TRANSPLACENTAL, 5 MG (5 MG, 1 IN 1 D), TRANSPLACENTAL
     Route: 064
     Dates: start: 20080424, end: 20080518
  2. ESCITALOPRAM [Suspect]
     Dosage: 10 MG (10 MG, 1 IN 1 D), TRANSPLACENTAL, 5 MG (5 MG, 1 IN 1 D), TRANSPLACENTAL
     Route: 064
     Dates: start: 20080519, end: 20080718

REACTIONS (3)
  - MATERNAL DRUGS AFFECTING FOETUS [None]
  - PELVI-URETERIC OBSTRUCTION [None]
  - PYELOCALIECTASIS [None]
